FAERS Safety Report 10152380 (Version 1)
Quarter: 2014Q2

REPORT INFORMATION
  Report Type: Spontaneous
  Country: CA (occurrence: CA)
  Receive Date: 20140505
  Receipt Date: 20140505
  Transmission Date: 20141212
  Serious: Yes (Other)
  Sender: FDA-Public Use
  Company Number: CA-009507513-1405CAN001960

PATIENT
  Sex: Male

DRUGS (1)
  1. AERIUS [Suspect]
     Route: 065

REACTIONS (2)
  - Myocardial infarction [Unknown]
  - Nervousness [Unknown]
